FAERS Safety Report 9159200 (Version 2)
Quarter: 2013Q2

REPORT INFORMATION
  Report Type: Spontaneous
  Country: DE (occurrence: DE)
  Receive Date: 20130313
  Receipt Date: 20130509
  Transmission Date: 20140414
  Serious: Yes (Hospitalization)
  Sender: FDA-Public Use
  Company Number: DE-JNJFOC-20130304515

PATIENT
  Age: 33 Year
  Sex: Female
  Weight: 105 kg

DRUGS (3)
  1. XARELTO [Suspect]
     Indication: DEEP VEIN THROMBOSIS
     Route: 048
     Dates: start: 20121108
  2. XARELTO [Suspect]
     Indication: DEEP VEIN THROMBOSIS
     Route: 048
  3. XARELTO [Suspect]
     Indication: DEEP VEIN THROMBOSIS
     Route: 048
     Dates: start: 20121130, end: 20130217

REACTIONS (2)
  - Tension headache [Recovered/Resolved]
  - Vision blurred [Unknown]
